FAERS Safety Report 20084627 (Version 6)
Quarter: 2022Q4

REPORT INFORMATION
  Report Type: Report from Study
  Country: US (occurrence: US)
  Receive Date: 20211118
  Receipt Date: 20221003
  Transmission Date: 20230112
  Serious: No
  Sender: FDA-Public Use
  Company Number: US-NOVARTISTESTPH-NVSC2021US263405

PATIENT
  Sex: Male

DRUGS (2)
  1. COSENTYX [Suspect]
     Active Substance: SECUKINUMAB
     Indication: Psoriatic arthropathy
     Dosage: UNK
     Route: 065
  2. COSENTYX [Suspect]
     Active Substance: SECUKINUMAB
     Indication: Ankylosing spondylitis

REACTIONS (7)
  - Joint stiffness [Unknown]
  - Tendonitis [Unknown]
  - Peripheral swelling [Unknown]
  - Arthritis [Unknown]
  - Pain in extremity [Unknown]
  - Feeling abnormal [Unknown]
  - Drug ineffective [Unknown]
